FAERS Safety Report 8563787-2 (Version None)
Quarter: 2012Q3

REPORT INFORMATION
  Report Type: 
  Country: None (occurrence: None)
  Receive Date: 20120803
  Receipt Date: 20101118
  Transmission Date: 20120928
  Serious: Yes (Life-Threatening, Hospitalization)
  Sender: FDA-Public Use
  Company Number: ES-BAYER-201047470GPV

PATIENT
  Age: 31 Year
  Sex: Female

DRUGS (1)
  1. YASMIN [Suspect]
     Indication: ORAL CONTRACEPTION
     Route: 048
     Dates: start: 20100101, end: 20100726

REACTIONS (5)
  - NAUSEA [None]
  - PAIN IN EXTREMITY [None]
  - HYPERHIDROSIS [None]
  - CHEST PAIN [None]
  - ACUTE MYOCARDIAL INFARCTION [None]
